FAERS Safety Report 5916209-1 (Version None)
Quarter: 2008Q4

REPORT INFORMATION
  Report Type: 
  Country: None (occurrence: None)
  Receive Date: 20081013
  Receipt Date: 20081001
  Transmission Date: 20090506
  Serious: Yes (Hospitalization, Other)
  Sender: FDA-Public Use
  Company Number: JP-ROCHE-466896

PATIENT
  Sex: Male

DRUGS (20)
  1. VALGANCICLOVIR HCL [Suspect]
     Indication: CYTOMEGALOVIRUS CHORIORETINITIS
     Route: 048
     Dates: start: 20060119, end: 20060125
  2. VALGANCICLOVIR HCL [Suspect]
     Route: 048
     Dates: start: 20060126, end: 20060308
  3. VALGANCICLOVIR HCL [Suspect]
     Route: 048
     Dates: start: 20060502, end: 20060522
  4. VALGANCICLOVIR HCL [Suspect]
     Route: 048
     Dates: start: 20060712, end: 20060725
  5. RETROVIR [Suspect]
     Indication: HIV INFECTION
     Route: 048
     Dates: start: 20051226, end: 20060124
  6. STOCRIN [Suspect]
     Indication: HIV INFECTION
     Route: 048
     Dates: start: 20060808, end: 20070218
  7. STOCRIN [Suspect]
     Dosage: DOSE DECREASED
     Route: 048
     Dates: start: 20070219, end: 20070813
  8. EPIVIR [Concomitant]
     Indication: HIV INFECTION
     Route: 048
     Dates: start: 20051226, end: 20060807
  9. LEXIVA [Concomitant]
     Indication: HIV INFECTION
     Route: 048
     Dates: start: 20051226, end: 20060807
  10. ZERIT [Concomitant]
     Indication: HIV INFECTION
     Dosage: GENERIC NAME REPORTED AS SANILVUDINE.
     Route: 048
     Dates: start: 20060125, end: 20060807
  11. COTRIM [Concomitant]
     Route: 048
     Dates: start: 20060105, end: 20060807
  12. DIFLUCAN [Concomitant]
     Dates: start: 20051226, end: 20060111
  13. BICILLIN [Concomitant]
     Route: 048
     Dates: start: 20051208, end: 20060104
  14. EPZICOM [Concomitant]
     Route: 048
     Dates: start: 20060808
  15. CHEMOTHERAPY DRUG [Concomitant]
     Dosage: DRUG REPORTED: CHEMOTHERAPEUTICS
     Route: 048
  16. ALLELOCK [Concomitant]
     Route: 048
     Dates: start: 20070403
  17. CLARITHROMYCIN [Concomitant]
     Route: 048
     Dates: start: 20070403
  18. AMOBAN [Concomitant]
     Route: 048
     Dates: start: 20070521
  19. REYATAZ [Concomitant]
     Route: 048
     Dates: start: 20070814
  20. VALTREX [Concomitant]
     Route: 048
     Dates: start: 20061014, end: 20061018

REACTIONS (7)
  - BONE MARROW FAILURE [None]
  - CYTOMEGALOVIRUS CHORIORETINITIS [None]
  - GAIT DISTURBANCE [None]
  - HERPES ZOSTER [None]
  - HYPERURICAEMIA [None]
  - IMMUNE RECONSTITUTION SYNDROME [None]
  - RASH [None]
